FAERS Safety Report 6201299 (Version 18)
Quarter: 2013Q4

REPORT INFORMATION
  Report Type: Spontaneous
  Country: US (occurrence: US)
  Receive Date: 20061222
  Receipt Date: 20131015
  Transmission Date: 20140711
  Serious: Yes (Death, Hospitalization, Other)
  Sender: FDA-Public Use
  Company Number: PHEH2006US15224

PATIENT
  Age: 65 Year
  Sex: Female

DRUGS (22)
  1. AREDIA [Suspect]
     Route: 042
  2. ZOMETA [Suspect]
     Indication: PLASMA CELL MYELOMA
     Dosage: 4 MG
     Route: 042
     Dates: start: 20021128, end: 20050120
  3. PREDNISONE [Concomitant]
     Dosage: 40 MG, UNK
  4. ALKERAN [Concomitant]
     Dosage: 8 MG/ DAY
  5. CEMIDON [Concomitant]
  6. TEMAZEPAM [Concomitant]
  7. OXYCONTIN [Concomitant]
  8. ENDOCET [Concomitant]
  9. CHLORHEXIDINE [Concomitant]
  10. COUMADIN ^BOOTS^ [Concomitant]
  11. METOPROLOL [Concomitant]
  12. VITAMIN B12 [Concomitant]
  13. VELCADE [Concomitant]
  14. DECADRON                                /CAN/ [Concomitant]
  15. ARANESP [Concomitant]
  16. NEUPOGEN [Concomitant]
  17. CYTOXAN [Concomitant]
  18. VINCRISTINE [Concomitant]
  19. CARMUSTINE [Concomitant]
  20. OXYCODONE [Concomitant]
  21. WARFARIN [Concomitant]
  22. HYDROCHLOROTHIAZIDE [Concomitant]

REACTIONS (93)
  - Death [Fatal]
  - Normochromic normocytic anaemia [Unknown]
  - Osteonecrosis of jaw [Unknown]
  - General physical health deterioration [Unknown]
  - Pain [Unknown]
  - Anxiety [Unknown]
  - Decreased interest [Unknown]
  - Soft tissue inflammation [Unknown]
  - Pancytopenia [Unknown]
  - Fatigue [Unknown]
  - Central nervous system lesion [Unknown]
  - Brain oedema [Unknown]
  - Plasmacytoma [Unknown]
  - Plasma cell myeloma recurrent [Unknown]
  - Eye movement disorder [Unknown]
  - Fall [Unknown]
  - Epistaxis [Unknown]
  - Renal failure [Unknown]
  - Asthenia [Unknown]
  - Hypercapnia [Unknown]
  - Depressed level of consciousness [Unknown]
  - Lung infiltration [Unknown]
  - Astigmatism [Unknown]
  - Lens disorder [Unknown]
  - Gingivitis [Unknown]
  - Bone disorder [Unknown]
  - Swelling face [Unknown]
  - Fistula [Unknown]
  - Cellulitis [Unknown]
  - Metastatic neoplasm [Unknown]
  - Deep vein thrombosis [Unknown]
  - Pain in extremity [Unknown]
  - Local swelling [Unknown]
  - Urinary tract infection [Unknown]
  - Urine analysis abnormal [Unknown]
  - Purulence [Unknown]
  - Thrombocytopenia [Unknown]
  - Hypercoagulation [Unknown]
  - Neuropathy peripheral [Unknown]
  - Gait disturbance [Unknown]
  - Contusion [Unknown]
  - Laceration [Unknown]
  - Fracture [Unknown]
  - Osteoarthritis [Unknown]
  - Swelling [Unknown]
  - Vulvovaginal discomfort [Unknown]
  - Vulvovaginal burning sensation [Unknown]
  - Atrophic vulvovaginitis [Unknown]
  - Vulvovaginal mycotic infection [Recovering/Resolving]
  - Benign bone neoplasm [Unknown]
  - Dyspnoea [Unknown]
  - Aneurysm [Unknown]
  - Respiration abnormal [Unknown]
  - Cyst [Unknown]
  - Bronchitis [Unknown]
  - Influenza [Unknown]
  - Brain mass [Unknown]
  - Metastases to central nervous system [Unknown]
  - Emphysema [Unknown]
  - Eye infection [Unknown]
  - Lymphoma [Unknown]
  - Sinus tachycardia [Unknown]
  - Encephalomalacia [Unknown]
  - Cerebral ventricle dilatation [Unknown]
  - Delirium [Unknown]
  - Hallucination, visual [Unknown]
  - Hydrocephalus [Unknown]
  - Cerebral atrophy [Unknown]
  - Facial bones fracture [Unknown]
  - Haemorrhage [Unknown]
  - Renal cyst [Unknown]
  - Cardiomegaly [Unknown]
  - Staphylococcal infection [Unknown]
  - Embolism venous [Unknown]
  - Tumour pain [Unknown]
  - Memory impairment [Unknown]
  - Lethargy [Unknown]
  - Confusional state [Unknown]
  - Weight decreased [Unknown]
  - Metastases to spine [Unknown]
  - Hypotension [Unknown]
  - Sciatic nerve injury [Unknown]
  - Eye swelling [Unknown]
  - Osteolysis [Unknown]
  - Spinal disorder [Unknown]
  - Plasma cell myeloma [Unknown]
  - Malignant neoplasm progression [Unknown]
  - Hypoxia [Unknown]
  - Reading disorder [Unknown]
  - Decreased appetite [Unknown]
  - Constipation [Unknown]
  - Bone fragmentation [Unknown]
  - Eyelid ptosis [Unknown]
